FAERS Safety Report 7772339-3 (Version None)
Quarter: 2011Q3

REPORT INFORMATION
  Report Type: 
  Country: None (occurrence: None)
  Receive Date: 20110922
  Receipt Date: 20110413
  Transmission Date: 20111222
  Serious: No
  Sender: FDA-Public Use
  Company Number: US-ASTRAZENECA-2009SE33174

PATIENT
  Age: 53 Year
  Sex: Female
  Weight: 92.5 kg

DRUGS (16)
  1. LORAZEPAM [Concomitant]
     Dates: start: 20021111
  2. SEROQUEL [Suspect]
     Route: 048
     Dates: start: 20091229
  3. FLUOXETINE [Concomitant]
     Dates: start: 20021101, end: 20091229
  4. LOSARTAN POTASSIUM [Concomitant]
     Dates: start: 20091201
  5. ALPRAZOLAM [Concomitant]
     Indication: ANXIETY
     Dates: start: 20091201
  6. TYLENOL-500 [Concomitant]
     Indication: BACK PAIN
     Dates: start: 20091201
  7. PERCOCET [Concomitant]
     Indication: BACK PAIN
     Dosage: 5 MG/325 MG 1 TABLET THREE TIMES A DAY
     Dates: start: 20021202
  8. OMEPRAZOLE [Concomitant]
     Indication: GASTROOESOPHAGEAL REFLUX DISEASE
     Dates: start: 20091201
  9. SEROQUEL [Suspect]
     Route: 048
     Dates: start: 20020101
  10. ELMIRON [Concomitant]
     Indication: CYSTITIS INTERSTITIAL
     Dates: start: 20091201
  11. CARISOPRODOL [Concomitant]
     Dosage: ONE TABLET TWICE DAILY AS NEEDED
     Dates: start: 20021030
  12. SEROQUEL [Suspect]
     Indication: DEPRESSION
     Route: 048
     Dates: start: 19930101
  13. SEROQUEL [Suspect]
     Route: 048
     Dates: start: 20021118
  14. PERCOCET [Concomitant]
     Dosage: 15 MG Q 3-4 H
     Dates: start: 20091201
  15. PROTONIX [Concomitant]
     Indication: GASTROOESOPHAGEAL REFLUX DISEASE
     Dosage: BID
     Dates: start: 20030901
  16. PERCOCET [Concomitant]
     Dosage: QID
     Dates: start: 20030901

REACTIONS (4)
  - BACK INJURY [None]
  - BLOOD TRIGLYCERIDES INCREASED [None]
  - TYPE 2 DIABETES MELLITUS [None]
  - OBESITY [None]
